FAERS Safety Report 5835822-3 (Version None)
Quarter: 2008Q3

REPORT INFORMATION
  Report Type: 
  Country: None (occurrence: None)
  Receive Date: 20080806
  Receipt Date: 20080801
  Transmission Date: 20090109
  Serious: No
  Sender: FDA-Public Use
  Company Number: US-BOEHRINGER INGELHEIM GMBH, GERMANY-2008-BP-12221BP

PATIENT
  Sex: Female

DRUGS (12)
  1. SPIRIVA [Suspect]
     Indication: CHRONIC OBSTRUCTIVE PULMONARY DISEASE
     Route: 055
     Dates: start: 20071101
  2. PREVACID [Concomitant]
     Route: 048
  3. PHENERGAN HCL [Concomitant]
     Route: 048
  4. LORTAB [Concomitant]
     Route: 048
  5. XANAX [Concomitant]
     Route: 048
  6. TRAZODONE HCL [Concomitant]
     Route: 048
  7. LOPRESSOR [Concomitant]
     Route: 048
  8. PREMPRO [Concomitant]
     Route: 048
  9. CLONIDIINE [Concomitant]
     Route: 048
  10. SUDAFED 12 HOUR [Concomitant]
     Route: 048
  11. CLARITIN [Concomitant]
     Route: 048
  12. GUAIFENESIN [Concomitant]
     Route: 048

REACTIONS (1)
  - DRUG INEFFECTIVE [None]
